FAERS Safety Report 9671827 (Version 2)
Quarter: 2013Q4

REPORT INFORMATION
  Report Type: Spontaneous
  Country: AT (occurrence: AT)
  Receive Date: 20131106
  Receipt Date: 20131106
  Transmission Date: 20140711
  Serious: Yes (Life-Threatening)
  Sender: FDA-Public Use
  Company Number: AT-PFIZER INC-2013273103

PATIENT
  Age: 63 Year
  Sex: Male
  Weight: 122 kg

DRUGS (8)
  1. LYRICA [Suspect]
     Indication: BACK PAIN
     Dosage: 75 MG, UNK
     Route: 048
     Dates: start: 201303
  2. OXYCONTIN [Suspect]
     Indication: BACK PAIN
     Dosage: 160 MG, UNK
     Route: 048
     Dates: start: 2007
  3. OXYCONTIN [Suspect]
     Dosage: 25 MG, 2X/DAY
     Route: 048
  4. ACEMIN [Concomitant]
     Dosage: 20 MG, UNK
     Route: 048
  5. PANTOPRAZOLE [Concomitant]
     Dosage: 40 MG, UNK
     Route: 048
  6. EUTHYROX [Concomitant]
     Dosage: 100 UG, UNK
     Route: 048
  7. THROMBO ASS [Concomitant]
     Dosage: 100 MG, UNK
     Route: 048
  8. SIMVASTATIN [Concomitant]
     Dosage: 40 MG, UNK
     Route: 048

REACTIONS (4)
  - Off label use [Unknown]
  - Dyspnoea [Not Recovered/Not Resolved]
  - Hyperhidrosis [Unknown]
  - Headache [Unknown]
